FAERS Safety Report 7631343-6 (Version None)
Quarter: 2011Q3

REPORT INFORMATION
  Report Type: 
  Country: None (occurrence: None)
  Receive Date: 20110725
  Receipt Date: 20110712
  Transmission Date: 20111222
  Serious: Yes (Death, Life-Threatening, Hospitalization, Other)
  Sender: FDA-Public Use
  Company Number: US-ELI_LILLY_AND_COMPANY-US201006002037

PATIENT
  Sex: Female
  Weight: 55.782 kg

DRUGS (9)
  1. FDG SCAN [Concomitant]
     Indication: POSITRON EMISSION TOMOGRAM
     Dosage: 13.9 MCI, SINGLE
     Route: 042
  2. FORTEO [Suspect]
     Indication: OSTEOPOROSIS
     Dosage: 20 UG, QD
     Route: 058
     Dates: start: 20100401
  3. FORTEO [Suspect]
     Dosage: 20 UG, QD
     Route: 058
  4. FORTEO [Suspect]
     Dosage: 20 UG, QD
     Route: 058
  5. ANTIHYPERTENSIVES [Concomitant]
  6. LIDOCAINE [Concomitant]
     Indication: BIOPSY
  7. GASTROGRAFIN [Concomitant]
     Indication: POSITRON EMISSION TOMOGRAM
     Dosage: 600 UNK, UNK
     Route: 048
  8. VERSED [Concomitant]
     Indication: SEDATION
  9. FENTANYL [Concomitant]
     Indication: SEDATION

REACTIONS (7)
  - DEATH [None]
  - PROCEDURAL COMPLICATION [None]
  - APALLIC SYNDROME [None]
  - COMA [None]
  - INJECTION SITE HAEMATOMA [None]
  - LUNG ADENOCARCINOMA STAGE I [None]
  - BRAIN HYPOXIA [None]
